FAERS Safety Report 7444713-6 (Version None)
Quarter: 2011Q2

REPORT INFORMATION
  Report Type: 
  Country: None (occurrence: None)
  Receive Date: 20110429
  Receipt Date: 20110426
  Transmission Date: 20111010
  Serious: Yes (Hospitalization)
  Sender: FDA-Public Use
  Company Number: US-AMGEN-USASP2011021950

PATIENT
  Age: 35 Year
  Sex: Male

DRUGS (1)
  1. NPLATE [Suspect]
     Indication: PRODUCT USED FOR UNKNOWN INDICATION
     Dosage: 1 UNK, UNK

REACTIONS (4)
  - ABDOMINAL PAIN [None]
  - MYALGIA [None]
  - ARTHRALGIA [None]
  - NAUSEA [None]
